FAERS Safety Report 21821934 (Version 1)
Quarter: 2023Q1

REPORT INFORMATION
  Report Type: Spontaneous
  Country: US (occurrence: None)
  Receive Date: 20230104
  Receipt Date: 20230104
  Transmission Date: 20230418
  Serious: No
  Sender: FDA-Public Use
  Company Number: None

PATIENT
  Age: 65 Year
  Sex: Female
  Weight: 99.56 kg

DRUGS (14)
  1. KISQALI FEMARA CO-PACK [Suspect]
     Active Substance: LETROZOLE\RIBOCICLIB
     Indication: Breast cancer female
     Dosage: 600MG AS DIRECTED ORAL?
     Route: 048
  2. ASPIRIN [Concomitant]
     Active Substance: ASPIRIN
  3. ATORVASTATIN [Concomitant]
  4. CALCIUM [Suspect]
     Active Substance: CALCIUM
  5. CELEBREX [Concomitant]
     Active Substance: CELECOXIB
  6. CULTURELLE [Concomitant]
     Active Substance: LACTOBACILLUS RHAMNOSUS
  7. FLUTICASONE [Concomitant]
     Active Substance: FLUTICASONE
  8. LETROZOLE [Concomitant]
     Active Substance: LETROZOLE
  9. LORATADINE [Concomitant]
     Active Substance: LORATADINE
  10. METFORMIN HYDROCHLORIDE [Concomitant]
     Active Substance: METFORMIN HYDROCHLORIDE
  11. VITAMINS [Concomitant]
     Active Substance: VITAMINS
  12. SINGULAIR [Concomitant]
     Active Substance: MONTELUKAST SODIUM
  13. TRAMADOL [Concomitant]
     Active Substance: TRAMADOL
  14. VITAMIN D3 [Concomitant]
     Active Substance: CHOLECALCIFEROL

REACTIONS (2)
  - COVID-19 [None]
  - SARS-CoV-2 test positive [None]
